FAERS Safety Report 5144468-4 (Version None)
Quarter: 2006Q4

REPORT INFORMATION
  Report Type: 
  Country: None (occurrence: None)
  Receive Date: 20061031
  Receipt Date: 20061020
  Transmission Date: 20070319
  Serious: Yes (Disabling, Other)
  Sender: FDA-Public Use
  Company Number: 30030

PATIENT
  Age: 30 Year
  Sex: Male

DRUGS (1)
  1. ALDARA [Suspect]
     Indication: ANOGENITAL WARTS
     Dosage: 1SACHET (3 IN 1 WEEK(S)) TOPICAL
     Route: 061
     Dates: start: 20060718, end: 20060905

REACTIONS (4)
  - HYPOAESTHESIA [None]
  - MULTIPLE SCLEROSIS [None]
  - OPTIC NEURITIS [None]
  - VISION BLURRED [None]
